FAERS Safety Report 6916323-8 (Version None)
Quarter: 2010Q3

REPORT INFORMATION
  Report Type: 
  Country: None (occurrence: None)
  Receive Date: 20100810
  Receipt Date: 20100729
  Transmission Date: 20110219
  Serious: Yes (Other)
  Sender: FDA-Public Use
  Company Number: IE-PFIZER INC-2010095740

PATIENT
  Age: 43 Year
  Sex: Female

DRUGS (1)
  1. LINEZOLID [Suspect]
     Indication: SURGERY
     Dosage: UNK
     Route: 042
     Dates: end: 20100722

REACTIONS (2)
  - HALLUCINATION [None]
  - PARAESTHESIA [None]
